FAERS Safety Report 17771495 (Version 1)
Quarter: 2020Q2

REPORT INFORMATION
  Report Type: Spontaneous
  Country: HR (occurrence: HR)
  Receive Date: 20200512
  Receipt Date: 20200512
  Transmission Date: 20200714
  Serious: Yes (Hospitalization)
  Sender: FDA-Public Use
  Company Number: HR-AMERICAN REGENT INC-2020001002

PATIENT
  Age: 61 Year
  Sex: Female
  Weight: 80 kg

DRUGS (4)
  1. FERINJECT [Suspect]
     Active Substance: FERRIC CARBOXYMALTOSE
     Indication: ANAEMIA
     Dosage: TWO TOTAL (1 IN 1 WK) (TOTAL DOSE OF 1500 MG)
     Route: 042
     Dates: start: 20191125, end: 20191202
  2. INFLIXIMAB [Concomitant]
     Active Substance: INFLIXIMAB
     Indication: PRODUCT USED FOR UNKNOWN INDICATION
     Dosage: 1 IN 8 WK
     Route: 065
     Dates: start: 2019, end: 20200103
  3. AZATHIOPRINE. [Concomitant]
     Active Substance: AZATHIOPRINE
     Indication: PRODUCT USED FOR UNKNOWN INDICATION
     Dosage: 50 MILLIGRAM, 1 IN 1 D
     Route: 065
  4. MESALAZINE [Concomitant]
     Active Substance: MESALAMINE
     Indication: PRODUCT USED FOR UNKNOWN INDICATION
     Dosage: 2000 MILLIGRAM, 1 IN 1 D
     Route: 065

REACTIONS (3)
  - Gait disturbance [Recovering/Resolving]
  - Paraesthesia [Recovering/Resolving]
  - Hypophosphataemia [Recovered/Resolved]

NARRATIVE: CASE EVENT DATE: 20200127
